FAERS Safety Report 9668293 (Version 1)
Quarter: 2013Q4

REPORT INFORMATION
  Report Type: Spontaneous
  Country: GB (occurrence: GB)
  Receive Date: 20131104
  Receipt Date: 20131104
  Transmission Date: 20140711
  Serious: Yes (Other)
  Sender: FDA-Public Use
  Company Number: PHHY2013GB121490

PATIENT
  Age: 76 Year
  Sex: Female
  Weight: 65 kg

DRUGS (5)
  1. INDOMETHACIN [Suspect]
     Indication: RHEUMATOID ARTHRITIS
     Dosage: 50 MG (TAKEN AS NEEDED)
     Route: 048
     Dates: start: 201201, end: 201309
  2. ASPIRIN [Concomitant]
  3. CO-CODAMOL [Concomitant]
  4. RAMIPRIL [Concomitant]
  5. ATORVASTATIN [Concomitant]

REACTIONS (4)
  - Contusion [Recovered/Resolved]
  - Joint swelling [Recovering/Resolving]
  - Pain [Unknown]
  - Mouth ulceration [Recovered/Resolved]
